FAERS Safety Report 24665456 (Version 1)
Quarter: 2024Q4

REPORT INFORMATION
  Report Type: Report from Study
  Country: US (occurrence: US)
  Receive Date: 20241126
  Receipt Date: 20241126
  Transmission Date: 20250115
  Serious: No
  Sender: ACADIA PHARMACEUTICALS
  Company Number: US-ACADIA PHARMACEUTICALS INC.-ACA-2024-PIM-007445

PATIENT
  Age: 72 Year
  Sex: Female

DRUGS (17)
  1. NUPLAZID [Suspect]
     Active Substance: PIMAVANSERIN TARTRATE
     Indication: Parkinson^s disease
     Dosage: 34 MILLIGRAM, QD
     Route: 048
     Dates: start: 20230609
  2. DONEPEZIL [Concomitant]
     Active Substance: DONEPEZIL
  3. VITAMIN B COMPLEX [Concomitant]
     Active Substance: CYANOCOBALAMIN\DEXPANTHENOL\NIACINAMIDE\PYRIDOXINE HYDROCHLORIDE\RIBOFLAVIN 5^-PHOSPHATE SODIUM\THIA
  4. DIGESTIVE ENZYMES [ALPHA-D-GALACTOSIDASE;AMYLASE;BROMELAINS;CELLULASE; [Concomitant]
  5. PROBIOTICS NOS [Concomitant]
     Active Substance: PROBIOTICS NOS
  6. MAGNESIUM CITRATE [Concomitant]
     Active Substance: MAGNESIUM CITRATE
  7. CALCIUM ACETATE [Concomitant]
     Active Substance: CALCIUM ACETATE
  8. LEVOTHYROXINE [Concomitant]
     Active Substance: LEVOTHYROXINE
  9. ZINC [Concomitant]
     Active Substance: ZINC
  10. VITAMIN C [Concomitant]
     Active Substance: ASCORBIC ACID
  11. VITAMIN D3 [Concomitant]
     Active Substance: CHOLECALCIFEROL
  12. MIRTAZAPINE [Concomitant]
     Active Substance: MIRTAZAPINE
  13. FUROSEMIDE [Concomitant]
     Active Substance: FUROSEMIDE
  14. PIOGLITAZONE [Concomitant]
     Active Substance: PIOGLITAZONE
  15. LEXAPRO [Concomitant]
     Active Substance: ESCITALOPRAM OXALATE
  16. OXYCODONE [Concomitant]
     Active Substance: OXYCODONE
  17. IBUPROFEN [Concomitant]
     Active Substance: IBUPROFEN

REACTIONS (1)
  - Fall [Recovered/Resolved]

NARRATIVE: CASE EVENT DATE: 20241107
